FAERS Safety Report 6557633-6 (Version None)
Quarter: 2010Q1

REPORT INFORMATION
  Report Type: 
  Country: None (occurrence: None)
  Receive Date: 20100129
  Receipt Date: 20091020
  Transmission Date: 20100710
  Serious: No
  Sender: FDA-Public Use
  Company Number: A0812588A

PATIENT
  Age: 79 Year
  Sex: Female

DRUGS (6)
  1. FLOVENT [Suspect]
     Indication: ASTHMA
     Dosage: 1PUFF TWICE PER DAY
     Route: 055
     Dates: start: 20091020
  2. FIORINAL W/CODEINE [Concomitant]
  3. AMIODARONE [Concomitant]
  4. UNKNOWN MEDICATION [Concomitant]
  5. AZOPT [Concomitant]
  6. VITAMINS [Concomitant]

REACTIONS (2)
  - ASTHENIA [None]
  - NECK PAIN [None]
